FAERS Safety Report 4780168-8 (Version None)
Quarter: 2005Q3

REPORT INFORMATION
  Report Type: 
  Country: None (occurrence: None)
  Receive Date: 20050927
  Receipt Date: 20050919
  Transmission Date: 20060218
  Serious: Yes (Hospitalization, Other)
  Sender: FDA-Public Use
  Company Number: US-MERCK-0509USA02569

PATIENT
  Age: 62 Year
  Sex: Female

DRUGS (1)
  1. VYTORIN [Suspect]
     Route: 048

REACTIONS (3)
  - LEUKAEMIA [None]
  - MYALGIA [None]
  - PANCYTOPENIA [None]
